FAERS Safety Report 8675526 (Version 5)
Quarter: 2013Q1

REPORT INFORMATION
  Report Type: Spontaneous
  Country: US (occurrence: US)
  Receive Date: 20120720
  Receipt Date: 20130206
  Transmission Date: 20140127
  Serious: No
  Sender: FDA-Public Use
  Company Number: US-009507513-1207USA004576

PATIENT
  Age: 54 None
  Sex: Male
  Weight: 108.84 kg

DRUGS (3)
  1. PEGINTRON [Suspect]
     Indication: HEPATITIS C
     Dosage: 150 MG, QW (REDIPEN)
     Route: 058
     Dates: start: 20120621
  2. TELAPREVIR [Suspect]
     Dosage: 750 MG, TID
  3. RIBASPHERE [Suspect]
     Dosage: 600 MG, BID
     Route: 048

REACTIONS (12)
  - Gastric disorder [Unknown]
  - Somatisation disorder [Not Recovered/Not Resolved]
  - Injection site erythema [Unknown]
  - Injection site pruritus [Unknown]
  - Hepatitis C [Unknown]
  - Skin ulcer [Unknown]
  - Insomnia [Unknown]
  - Injection site reaction [Unknown]
  - Fatigue [Unknown]
  - Dyspnoea [Unknown]
  - Rash [Unknown]
  - Rash maculo-papular [Unknown]
